FAERS Safety Report 12987190 (Version 1)
Quarter: 2016Q4

REPORT INFORMATION
  Report Type: Spontaneous
  Country: PL (occurrence: PL)
  Receive Date: 20161130
  Receipt Date: 20161130
  Transmission Date: 20170207
  Serious: Yes (Hospitalization)
  Sender: FDA-Public Use
  Company Number: PHHY2016PL159500

PATIENT
  Age: 27 Year
  Sex: Female
  Weight: 61 kg

DRUGS (9)
  1. PYRALGIN [Concomitant]
     Active Substance: DIPYRONE
     Indication: ANALGESIC THERAPY
     Dosage: DOSE: 1; DOSE UNIT: NOT SPECIFIED
     Route: 065
     Dates: start: 20140924, end: 20141014
  2. CERAZETTE [Suspect]
     Active Substance: DESOGESTREL
     Indication: CONTRACEPTION
     Route: 048
     Dates: end: 20140921
  3. FLAVAMED [Suspect]
     Active Substance: AMBROXOL
     Indication: COUGH
     Route: 048
     Dates: start: 20141011, end: 20141014
  4. RELANIUM [Concomitant]
     Active Substance: DIAZEPAM
     Indication: ANXIOLYTIC THERAPY
     Dosage: 10 MG
     Route: 048
     Dates: start: 20141004, end: 20141014
  5. CLEXANE [Concomitant]
     Active Substance: ENOXAPARIN SODIUM
     Indication: EMBOLISM VENOUS
     Dosage: 40 MG
     Route: 058
     Dates: end: 20141014
  6. DEXAVEN [Concomitant]
     Active Substance: DEXAMETHASONE
     Indication: OEDEMA
     Dosage: 4 MG
     Route: 042
     Dates: start: 20140924, end: 20140926
  7. CONTROLOC [Concomitant]
     Active Substance: PANTOPRAZOLE SODIUM
     Indication: PROPHYLAXIS
     Dosage: 20 MG,
     Route: 065
     Dates: start: 20140924
  8. BROMERGON [Suspect]
     Active Substance: BROMOCRIPTINE MESYLATE
     Indication: PRODUCT USED FOR UNKNOWN INDICATION
     Route: 048
     Dates: end: 20141007
  9. NIVALIN [Concomitant]
     Active Substance: GALANTAMINE HYDROBROMIDE
     Indication: NERVOUS SYSTEM DISORDER
     Route: 058
     Dates: start: 20140924, end: 20141010

REACTIONS (4)
  - Chest pain [Recovering/Resolving]
  - Pulmonary congestion [Recovering/Resolving]
  - Cough [Recovering/Resolving]
  - Dyspnoea [Recovering/Resolving]

NARRATIVE: CASE EVENT DATE: 20141010
